FAERS Safety Report 8077473-9 (Version None)
Quarter: 2012Q1

REPORT INFORMATION
  Report Type: 
  Country: None (occurrence: None)
  Receive Date: 20120127
  Receipt Date: 20100208
  Transmission Date: 20120608
  Serious: Yes (Other)
  Sender: FDA-Public Use
  Company Number: US-ABBOTT-08P-163-0460031-00

PATIENT
  Sex: Female
  Weight: 72.64 kg

DRUGS (2)
  1. HUMIRA [Suspect]
     Indication: RHEUMATOID ARTHRITIS
     Route: 058
     Dates: start: 20071228, end: 20080301
  2. SULPHSALZINE [Concomitant]
     Indication: RHEUMATOID ARTHRITIS

REACTIONS (22)
  - OVARIAN NEOPLASM [None]
  - DIZZINESS [None]
  - DECREASED APPETITE [None]
  - VAGINAL HAEMORRHAGE [None]
  - DYSGRAPHIA [None]
  - NEUROPATHY PERIPHERAL [None]
  - BACK PAIN [None]
  - CARPAL TUNNEL SYNDROME [None]
  - HYPOAESTHESIA [None]
  - PAIN IN EXTREMITY [None]
  - DISORIENTATION [None]
  - STARING [None]
  - NAUSEA [None]
  - DISTURBANCE IN ATTENTION [None]
  - DYSKINESIA [None]
  - ILL-DEFINED DISORDER [None]
  - SCIATICA [None]
  - POLYP [None]
  - FOOT FRACTURE [None]
  - CONVULSION [None]
  - AMNESIA [None]
  - VIRAL LOAD INCREASED [None]
